FAERS Safety Report 23899028 (Version 1)
Quarter: 2024Q2

REPORT INFORMATION
  Report Type: Spontaneous
  Country: US (occurrence: None)
  Receive Date: 20240525
  Receipt Date: 20240525
  Transmission Date: 20240716
  Serious: No
  Sender: FDA-Public Use
  Company Number: 2024A118460

PATIENT
  Sex: Female

DRUGS (1)
  1. BYDUREON BCISE [Suspect]
     Active Substance: EXENATIDE

REACTIONS (8)
  - Application site pain [Unknown]
  - Application site haemorrhage [Unknown]
  - Application site mass [Unknown]
  - Pain [Unknown]
  - Psychiatric symptom [Unknown]
  - Discomfort [Unknown]
  - Incorrect dose administered by device [Unknown]
  - Device malfunction [Unknown]
